FAERS Safety Report 16789576 (Version 1)
Quarter: 2019Q3

REPORT INFORMATION
  Report Type: Spontaneous
  Country: US (occurrence: US)
  Receive Date: 20190719
  Receipt Date: 20190719
  Transmission Date: 20191005
  Serious: No
  Sender: FDA-Public Use
  Company Number: None

PATIENT
  Age: 44 Year
  Sex: Female

DRUGS (1)
  1. IBRANCE [Suspect]
     Active Substance: PALBOCICLIB
     Route: 048
     Dates: start: 201901

REACTIONS (4)
  - Urticaria [None]
  - Drug hypersensitivity [None]
  - Cellulitis [None]
  - Rash [None]

NARRATIVE: CASE EVENT DATE: 20190604
